FAERS Safety Report 8159570-2 (Version None)
Quarter: 2012Q1

REPORT INFORMATION
  Report Type: 
  Country: None (occurrence: None)
  Receive Date: 20120223
  Receipt Date: 20120216
  Transmission Date: 20120608
  Serious: No
  Sender: FDA-Public Use
  Company Number: US-PFIZER INC-2012043179

PATIENT
  Sex: Male

DRUGS (2)
  1. POTASSIUM PENICILLIN G [Suspect]
     Dosage: UNK
  2. SULFUR [Suspect]
     Dosage: UNK

REACTIONS (1)
  - DRUG HYPERSENSITIVITY [None]
